FAERS Safety Report 15025445 (Version 1)
Quarter: 2018Q2

REPORT INFORMATION
  Report Type: Spontaneous
  Country: US (occurrence: US)
  Receive Date: 20180618
  Receipt Date: 20180618
  Transmission Date: 20180711
  Serious: No
  Sender: FDA-Public Use
  Company Number: US-BIOGEN-2018BI00593195

PATIENT
  Age: 32 Year
  Sex: Female

DRUGS (1)
  1. TECFIDERA [Suspect]
     Active Substance: DIMETHYL FUMARATE
     Indication: MULTIPLE SCLEROSIS
     Dosage: MAINTENANCE DOSE
     Route: 048
     Dates: start: 20180601

REACTIONS (4)
  - Diarrhoea [Recovered/Resolved]
  - Chills [Unknown]
  - Abdominal pain upper [Recovered/Resolved]
  - Gastric disorder [Recovered/Resolved]

NARRATIVE: CASE EVENT DATE: 201806
